FAERS Safety Report 5641714-5 (Version None)
Quarter: 2008Q1

REPORT INFORMATION
  Report Type: 
  Country: None (occurrence: None)
  Receive Date: 20080131
  Receipt Date: 20071102
  Transmission Date: 20080703
  Serious: No
  Sender: FDA-Public Use
  Company Number: PHEH2007US13669

PATIENT
  Age: 87 Year
  Sex: Female
  Weight: 50.8 kg

DRUGS (6)
  1. TEKTURNA [Suspect]
     Indication: HYPERTENSION
     Dosage: 150 MG, QD, ORAL
     Route: 048
     Dates: start: 20070920, end: 20070923
  2. BETA BLOCKING AGENTS    (NO INGREDIENTS/SUBSTANCES) [Concomitant]
  3. ANGIOTENSIN II ANTAGONISTS (NO INGREDIENTS/SUBSTANCES) [Concomitant]
  4. HYDROCHLOROTHIAZIDE [Concomitant]
  5. COZAAR [Concomitant]
  6. SULAR [Concomitant]

REACTIONS (1)
  - NAUSEA [None]
